FAERS Safety Report 6391620-6 (Version None)
Quarter: 2009Q4

REPORT INFORMATION
  Report Type: 
  Country: None (occurrence: None)
  Receive Date: 20091007
  Receipt Date: 20090729
  Transmission Date: 20100525
  Serious: No
  Sender: FDA-Public Use
  Company Number: A0796400A

PATIENT
  Age: 70 Year
  Sex: Female

DRUGS (8)
  1. ADVAIR DISKUS 100/50 [Suspect]
     Indication: DRUG USE FOR UNKNOWN INDICATION
     Route: 055
  2. VENTOLIN [Suspect]
     Indication: DRUG USE FOR UNKNOWN INDICATION
     Route: 055
  3. PREDNISONE [Concomitant]
  4. NORVASC [Concomitant]
  5. NEXIUM [Concomitant]
  6. DIOVAN [Concomitant]
  7. CRESTOR [Concomitant]
  8. CELEXA [Concomitant]

REACTIONS (1)
  - DRUG INEFFECTIVE [None]
